FAERS Safety Report 5366409-7 (Version None)
Quarter: 2007Q2

REPORT INFORMATION
  Report Type: 
  Country: None (occurrence: None)
  Receive Date: 20070622
  Receipt Date: 20070618
  Transmission Date: 20071010
  Serious: Yes (Death, Disabling, Other)
  Sender: FDA-Public Use
  Company Number: US-BAYER-200711906BWH

PATIENT
  Age: 69 Year
  Sex: Female

DRUGS (1)
  1. TRASYLOL [Suspect]
     Indication: VASCULAR BYPASS GRAFT

REACTIONS (10)
  - ADVERSE EVENT [None]
  - ANXIETY [None]
  - DEATH [None]
  - DEPRESSED MOOD [None]
  - DISABILITY [None]
  - FEAR [None]
  - GENERAL PHYSICAL HEALTH DETERIORATION [None]
  - INJURY [None]
  - PAIN [None]
  - RENAL FAILURE ACUTE [None]
